FAERS Safety Report 7964332-2 (Version None)
Quarter: 2011Q4

REPORT INFORMATION
  Report Type: 
  Country: None (occurrence: None)
  Receive Date: 20111208
  Receipt Date: 20111205
  Transmission Date: 20120403
  Serious: Yes (Hospitalization)
  Sender: FDA-Public Use
  Company Number: US-VERTEX PHARMACEUTICALS INC.-AE-2011-003888

PATIENT
  Sex: Female
  Weight: 77.634 kg

DRUGS (3)
  1. INCIVEK [Suspect]
     Indication: HEPATITIS C
     Route: 048
     Dates: start: 20110929, end: 20111129
  2. RIBAVIRIN [Concomitant]
     Indication: HEPATITIS C
     Route: 048
     Dates: start: 20110922, end: 20111201
  3. PEGASYS [Concomitant]
     Indication: HEPATITIS C
     Route: 058
     Dates: start: 20110928, end: 20111201

REACTIONS (7)
  - GAIT DISTURBANCE [None]
  - ANORECTAL DISCOMFORT [None]
  - INCOHERENT [None]
  - DYSPNOEA [None]
  - RASH PRURITIC [None]
  - RECTAL HAEMORRHAGE [None]
  - PLATELET COUNT DECREASED [None]
